FAERS Safety Report 5219005-6 (Version None)
Quarter: 2007Q1

REPORT INFORMATION
  Report Type: 
  Country: None (occurrence: None)
  Receive Date: 20070125
  Receipt Date: 20070116
  Transmission Date: 20070707
  Serious: Yes (Other)
  Sender: FDA-Public Use
  Company Number: CO-ROCHE-478757

PATIENT
  Age: 42 Year
  Sex: Female
  Weight: 63 kg

DRUGS (3)
  1. XENICAL [Suspect]
     Indication: WEIGHT CONTROL
     Route: 048
     Dates: start: 20061015, end: 20070115
  2. GEMFIBROZIL [Concomitant]
     Indication: HYPERTRIGLYCERIDAEMIA
     Route: 048
     Dates: start: 20030715, end: 20060715
  3. METOPROLOL SUCCINATE [Concomitant]
     Indication: HYPERTENSION
     Route: 048
     Dates: start: 19870615

REACTIONS (2)
  - DRUG INEFFECTIVE [None]
  - HYPERTRIGLYCERIDAEMIA [None]
